FAERS Safety Report 5188117-8 (Version None)
Quarter: 2006Q4

REPORT INFORMATION
  Report Type: 
  Country: None (occurrence: None)
  Receive Date: 20061221
  Receipt Date: 20060912
  Transmission Date: 20070319
  Serious: Yes (Hospitalization, Other)
  Sender: FDA-Public Use
  Company Number: DE-MERCK-0609DEU00052

PATIENT
  Age: 79 Year
  Sex: Female
  Weight: 70 kg

DRUGS (12)
  1. FOSAMAX [Suspect]
     Indication: OSTEOPOROSIS
     Route: 048
     Dates: start: 20020801, end: 20060619
  2. REBOXETINE [Concomitant]
     Route: 048
  3. SPIRONOLACTONE [Concomitant]
     Route: 048
  4. PRAVASTATIN SODIUM [Concomitant]
     Route: 048
  5. LEVOTHYROXINE SODIUM [Concomitant]
     Route: 048
  6. GINKGO [Concomitant]
     Route: 048
  7. FLUTICASONE PROPIONATE AND SALMETEROL XINAFOATE [Concomitant]
  8. TIOTROPIUM BROMIDE [Concomitant]
  9. TORSEMIDE [Concomitant]
     Route: 048
  10. IRBESARTAN [Concomitant]
     Route: 048
  11. FERROUS GLYCINE SULFATE [Concomitant]
     Route: 048
  12. PREDNISONE [Concomitant]
     Route: 048

REACTIONS (3)
  - ADVERSE EVENT [None]
  - OSTEONECROSIS [None]
  - SUPERINFECTION [None]
